FAERS Safety Report 5219073-1 (Version None)
Quarter: 2007Q1

REPORT INFORMATION
  Report Type: 
  Country: None (occurrence: None)
  Receive Date: 20070122
  Receipt Date: 20070111
  Transmission Date: 20070707
  Serious: Yes (Hospitalization)
  Sender: FDA-Public Use
  Company Number: INCL - PR -0701S-0001

PATIENT
  Age: 17 Year
  Sex: Female

DRUGS (1)
  1. INDIUM IN 111 CHLORIDE [Suspect]
     Indication: PROTEIN-LOSING GASTROENTEROPATHY
     Dosage: 133.2 MBQ, SINGLE DOSE, IV
     Route: 042
     Dates: start: 20070110, end: 20070110

REACTIONS (2)
  - ABDOMINAL PAIN [None]
  - ARTHRITIS INFECTIVE [None]
